FAERS Safety Report 10080454 (Version 1)
Quarter: 2014Q2

REPORT INFORMATION
  Report Type: Spontaneous
  Country: ZA (occurrence: ZA)
  Receive Date: 20140416
  Receipt Date: 20140416
  Transmission Date: 20141212
  Serious: Yes (Other)
  Sender: FDA-Public Use
  Company Number: ZA-009507513-1404ZAF007379

PATIENT
  Sex: Male

DRUGS (1)
  1. INEGY [Suspect]
     Dosage: 40 MG
     Route: 048

REACTIONS (2)
  - Cardiac failure chronic [Unknown]
  - Generalised oedema [Unknown]
